FAERS Safety Report 11091687 (Version 1)
Quarter: 2015Q2

REPORT INFORMATION
  Report Type: Spontaneous
  Country: CH (occurrence: CH)
  Receive Date: 20150505
  Receipt Date: 20150505
  Transmission Date: 20150821
  Serious: Yes (Other)
  Sender: FDA-Public Use
  Company Number: CH-ELI_LILLY_AND_COMPANY-CH201504008844

PATIENT
  Age: 33 Year
  Sex: Female
  Weight: 39 kg

DRUGS (4)
  1. TRANXILIUM [Suspect]
     Active Substance: CLORAZEPATE DIPOTASSIUM
     Indication: PRODUCT USED FOR UNKNOWN INDICATION
     Dosage: 20 MG, QD
     Route: 048
     Dates: start: 201504
  2. TEMESTA                            /00273201/ [Suspect]
     Active Substance: LORAZEPAM
     Indication: PRODUCT USED FOR UNKNOWN INDICATION
     Dosage: 2.5 MG, QD
     Route: 048
     Dates: start: 201504
  3. ZYPREXA [Suspect]
     Active Substance: OLANZAPINE
     Indication: PRODUCT USED FOR UNKNOWN INDICATION
     Dosage: 20 MG, QD
     Route: 048
     Dates: start: 201503
  4. PAROXETINE [Concomitant]
     Active Substance: PAROXETINE\PAROXETINE HYDROCHLORIDE
     Dosage: 20 MG, QD
     Route: 048

REACTIONS (3)
  - Drug dependence [Not Recovered/Not Resolved]
  - Urinary retention [Not Recovered/Not Resolved]
  - Dysuria [Not Recovered/Not Resolved]

NARRATIVE: CASE EVENT DATE: 201504
